FAERS Safety Report 7205014-4 (Version None)
Quarter: 2010Q4

REPORT INFORMATION
  Report Type: 
  Country: None (occurrence: None)
  Receive Date: 20101230
  Receipt Date: 20101229
  Transmission Date: 20110411
  Serious: Yes (Death, Hospitalization, Other)
  Sender: FDA-Public Use
  Company Number: US-AMGEN-KDC402333

PATIENT
  Age: 63 Year
  Sex: Female

DRUGS (9)
  1. PEGFILGRASTIM [Suspect]
     Indication: BREAST CANCER
     Dosage: 6 MG, UNK
     Route: 058
     Dates: start: 20090918, end: 20091107
  2. DOXORUBICIN HCL [Suspect]
     Indication: BREAST CANCER
     Dosage: 60 MG/M2, UNK
     Route: 042
     Dates: start: 20090918, end: 20091106
  3. CYCLOPHOSPHAMIDE [Suspect]
     Indication: BREAST CANCER
     Dosage: 600 MG/M2, UNK
     Route: 042
     Dates: start: 20090918, end: 20091106
  4. PACLITAXEL [Suspect]
     Indication: BREAST CANCER
     Dosage: 80 MG/M2, UNK
     Route: 042
     Dates: start: 20090918
  5. BEVACIZUMAB [Suspect]
     Indication: BREAST CANCER
     Dosage: UNK BLINDED, UNK
     Route: 042
     Dates: start: 20090918, end: 20091106
  6. METOPROLOL [Concomitant]
  7. ALPRAZOLAM [Concomitant]
  8. LOMOTIL [Concomitant]
  9. ONDANSETRON HYDROCHLORIDE [Concomitant]

REACTIONS (4)
  - CLOSTRIDIAL INFECTION [None]
  - COLITIS [None]
  - DEHYDRATION [None]
  - PYREXIA [None]
